FAERS Safety Report 7400074-X (Version None)
Quarter: 2011Q2

REPORT INFORMATION
  Report Type: 
  Country: None (occurrence: None)
  Receive Date: 20110407
  Receipt Date: 20110330
  Transmission Date: 20111010
  Serious: Yes (Hospitalization, Other)
  Sender: FDA-Public Use
  Company Number: UZ-B.I. PHARMACEUTICALS,INC./RIDGEFIELD-2011-BP-09836BP

PATIENT
  Sex: Female

DRUGS (1)
  1. PRADAXA [Suspect]

REACTIONS (2)
  - ABDOMINAL PAIN [None]
  - RENAL FAILURE ACUTE [None]
